FAERS Safety Report 5898246-9 (Version None)
Quarter: 2008Q3

REPORT INFORMATION
  Report Type: 
  Country: None (occurrence: None)
  Receive Date: 20080925
  Receipt Date: 20070802
  Transmission Date: 20090109
  Serious: No
  Sender: FDA-Public Use
  Company Number: A0667886A

PATIENT
  Age: 54 Year
  Sex: Female

DRUGS (8)
  1. WELLBUTRIN XL [Suspect]
     Indication: DEPRESSION
     Dosage: 300MG PER DAY
     Route: 048
     Dates: start: 20070101, end: 20070101
  2. DIOVAN [Concomitant]
  3. ZYRTEC [Concomitant]
  4. LIPITOR [Concomitant]
  5. MULTI-VITAMIN [Concomitant]
  6. TUMS [Concomitant]
  7. CITRUCEL [Concomitant]
  8. NASONEX [Concomitant]

REACTIONS (1)
  - DRUG INEFFECTIVE [None]
